FAERS Safety Report 6176651-3 (Version None)
Quarter: 2009Q2

REPORT INFORMATION
  Report Type: 
  Country: None (occurrence: None)
  Receive Date: 20090501
  Receipt Date: 20090422
  Transmission Date: 20091009
  Serious: Yes (Other)
  Sender: FDA-Public Use
  Company Number: DE-ABBOTT-09P-062-0569569-00

PATIENT
  Sex: Male
  Weight: 103 kg

DRUGS (2)
  1. HUMIRA [Suspect]
     Indication: PSORIASIS
     Route: 058
  2. HUMIRA [Suspect]
     Dates: start: 20080421, end: 20080804

REACTIONS (3)
  - ABDOMINAL PAIN [None]
  - GASTROINTESTINAL NEOPLASM [None]
  - INTESTINAL OBSTRUCTION [None]
